FAERS Safety Report 6345536-1 (Version None)
Quarter: 2009Q3

REPORT INFORMATION
  Report Type: 
  Country: None (occurrence: None)
  Receive Date: 20090909
  Receipt Date: 20090827
  Transmission Date: 20100115
  Serious: Yes (Other)
  Sender: FDA-Public Use
  Company Number: BR-PFIZER INC-2009260980

PATIENT
  Age: 76 Year

DRUGS (3)
  1. XALATAN [Suspect]
     Indication: GLAUCOMA
     Dosage: UNK
     Route: 047
  2. RIVOTRIL [Concomitant]
     Dosage: UNK
  3. PHENOBARBITAL [Concomitant]
     Dosage: UNK

REACTIONS (3)
  - BLINDNESS UNILATERAL [None]
  - EYE IRRITATION [None]
  - OCULAR HYPERAEMIA [None]
